FAERS Safety Report 5210523-3 (Version None)
Quarter: 2007Q1

REPORT INFORMATION
  Report Type: 
  Country: None (occurrence: None)
  Receive Date: 20070117
  Receipt Date: 20070110
  Transmission Date: 20070707
  Serious: Yes (Other)
  Sender: FDA-Public Use
  Company Number: US-AMGEN-STX206412

PATIENT
  Sex: Female

DRUGS (2)
  1. ENBREL [Suspect]
     Indication: PSORIASIS
     Route: 058
     Dates: start: 20030114
  2. ENBREL [Suspect]
     Indication: PSORIATIC ARTHROPATHY

REACTIONS (9)
  - CONDITION AGGRAVATED [None]
  - HEADACHE [None]
  - HEPATIC CIRRHOSIS [None]
  - INJECTION SITE REACTION [None]
  - LIVER DISORDER [None]
  - MUSCLE INJURY [None]
  - PERIARTHRITIS [None]
  - PSORIASIS [None]
  - TENDON RUPTURE [None]
